FAERS Safety Report 18378160 (Version 1)
Quarter: 2020Q4

REPORT INFORMATION
  Report Type: Report from Study
  Country: US (occurrence: US)
  Receive Date: 20201013
  Receipt Date: 20201013
  Transmission Date: 20210114
  Serious: Yes (Hospitalization)
  Sender: FDA-Public Use
  Company Number: US-BAYER-2020-214987

PATIENT
  Age: 48 Year
  Sex: Female
  Weight: 99.77 kg

DRUGS (6)
  1. AFRIN [BENZALKONIUM CHLORIDE;GLYCINE;OXYMETAZOLINE HYDROCHLORIDE;P [Concomitant]
  2. VITAMINS NOS [Concomitant]
     Active Substance: VITAMINS
     Dosage: DAILY
  3. STIVARGA [Suspect]
     Active Substance: REGORAFENIB
     Indication: COLON CANCER
     Dosage: UNK
     Dates: start: 20200925, end: 2020
  4. LONSURF [Concomitant]
     Active Substance: TIPIRACIL HYDROCHLORIDE\TRIFLURIDINE
  5. TYLENOL [Concomitant]
     Active Substance: ACETAMINOPHEN
  6. STIVARGA [Suspect]
     Active Substance: REGORAFENIB
     Indication: COLON CANCER
     Dosage: DAILY DOSE 80 MG FOR 21 DAYS
     Route: 048
     Dates: start: 20200907, end: 202009

REACTIONS (4)
  - Hospitalisation [None]
  - Off label use [None]
  - Jaundice [None]
  - Liver function test increased [None]

NARRATIVE: CASE EVENT DATE: 20200907
